FAERS Safety Report 4932312-7 (Version None)
Quarter: 2006Q1

REPORT INFORMATION
  Report Type: 
  Country: None (occurrence: None)
  Receive Date: 20060228
  Receipt Date: 20060208
  Transmission Date: 20060701
  Serious: Yes (Other)
  Sender: FDA-Public Use
  Company Number: ENTC2006-0009

PATIENT
  Age: 59 Year
  Sex: Female

DRUGS (2)
  1. STALEVO 100 [Suspect]
     Dosage: 600 MG (150 MG, 4 IN 1 D) ORAL
     Route: 048
     Dates: start: 20051201
  2. PRAMIPEXOLE DIHYDROCHLORIDE [Concomitant]

REACTIONS (2)
  - BRONCHIAL OBSTRUCTION [None]
  - HEADACHE [None]
